FAERS Safety Report 6457325-8 (Version None)
Quarter: 2009Q4

REPORT INFORMATION
  Report Type: 
  Country: None (occurrence: None)
  Receive Date: 20091125
  Receipt Date: 20091120
  Transmission Date: 20100525
  Serious: Yes (Hospitalization, Other)
  Sender: FDA-Public Use
  Company Number: GXKR2009JP12149

PATIENT
  Age: 58 Year
  Sex: Female
  Weight: 46 kg

DRUGS (16)
  1. ACETYLSALICYLIC ACID SRT [Suspect]
     Dosage: 100 MG, UNK
     Route: 065
     Dates: end: 20060928
  2. NICORANDIL (NGX) [Suspect]
     Dosage: 15 MG, UNK
     Route: 065
     Dates: end: 20060928
  3. TICLOPIDINE (NGX) [Suspect]
     Dosage: 200 MG, UNK
     Route: 065
     Dates: end: 20060928
  4. CILOSTAZOL [Suspect]
     Dosage: INCREASED TO 200MG
     Route: 065
  5. CARVEDILOL [Concomitant]
     Dosage: UNK
     Route: 065
     Dates: end: 20060928
  6. PRAVASTATIN [Concomitant]
     Dosage: UNK
     Route: 065
     Dates: end: 20060928
  7. VITAMIN B COMPLEX CAP [Concomitant]
     Dosage: UNK
     Route: 065
     Dates: end: 20060928
  8. TEPRENONE [Concomitant]
     Dosage: UNK
     Route: 065
     Dates: end: 20060928
  9. PREDNISOLONE [Concomitant]
     Dosage: UNK
     Route: 065
  10. PREDNISOLONE [Concomitant]
     Dosage: 40 MG, UNK
     Route: 065
  11. INDOMETHACIN [Concomitant]
     Dosage: UNK
     Route: 065
     Dates: end: 20060928
  12. FAMOTIDINE [Concomitant]
     Dosage: UNK
     Route: 065
     Dates: end: 20060928
  13. ALFACALCIDOL [Concomitant]
     Dosage: UNK
     Route: 065
     Dates: end: 20060928
  14. ZOLPIDEM [Concomitant]
     Dosage: UNK
     Route: 065
  15. HEPARIN [Concomitant]
     Route: 065
  16. SIROLIMUS [Concomitant]
     Dosage: UNK
     Dates: start: 20060904

REACTIONS (6)
  - CHOLESTATIC LIVER INJURY [None]
  - ERYTHEMA MULTIFORME [None]
  - EXCHANGE BLOOD TRANSFUSION [None]
  - HEART RATE INCREASED [None]
  - JAUNDICE [None]
  - RASH [None]
